FAERS Safety Report 24662187 (Version 2)
Quarter: 2025Q1

REPORT INFORMATION
  Report Type: Report from Study
  Country: US (occurrence: US)
  Receive Date: 20241125
  Receipt Date: 20250109
  Transmission Date: 20250408
  Serious: No
  Sender: SUNOVION
  Company Number: US-SUMITOMO PHARMA SWITZERLAND GMBH-2024SPA004240

PATIENT

DRUGS (1)
  1. ORGOVYX [Suspect]
     Active Substance: RELUGOLIX
     Indication: Prostate cancer
     Dosage: 120 MG, QD
     Route: 048
     Dates: start: 20241018

REACTIONS (7)
  - Pollakiuria [Unknown]
  - Adverse drug reaction [Unknown]
  - Frequent bowel movements [Unknown]
  - Nocturia [Unknown]
  - Arthralgia [Unknown]
  - Hot flush [Unknown]
  - Incorrect dose administered [Unknown]
